FAERS Safety Report 16424571 (Version 1)
Quarter: 2019Q2

REPORT INFORMATION
  Report Type: Spontaneous
  Country: US (occurrence: US)
  Receive Date: 20190613
  Receipt Date: 20190613
  Transmission Date: 20190711
  Serious: No
  Sender: FDA-Public Use
  Company Number: US-AMGEN-USASP2019090772

PATIENT
  Age: 56 Year
  Sex: Male

DRUGS (2)
  1. REPATHA [Suspect]
     Active Substance: EVOLOCUMAB
     Indication: BLOOD CHOLESTEROL INCREASED
     Dosage: 140 MILLIGRAM, Q2WK
     Route: 065
     Dates: start: 2018
  2. NOVOCAIN [Concomitant]
     Active Substance: PROCAINE HYDROCHLORIDE

REACTIONS (3)
  - Hyperaesthesia teeth [Recovered/Resolved]
  - Hypoaesthesia oral [Recovered/Resolved]
  - Muscle tightness [Recovering/Resolving]

NARRATIVE: CASE EVENT DATE: 201905
